FAERS Safety Report 10692518 (Version 2)
Quarter: 2015Q1

REPORT INFORMATION
  Report Type: Spontaneous
  Country: US (occurrence: US)
  Receive Date: 20150106
  Receipt Date: 20150128
  Transmission Date: 20150720
  Serious: Yes (Other)
  Sender: FDA-Public Use
  Company Number: US-PFIZER INC-2014362607

PATIENT
  Sex: Female

DRUGS (3)
  1. DISOPYRAMIDE PHOSPHATE. [Suspect]
     Active Substance: DISOPYRAMIDE PHOSPHATE
     Indication: VENTRICULAR FIBRILLATION
  2. DISOPYRAMIDE PHOSPHATE. [Suspect]
     Active Substance: DISOPYRAMIDE PHOSPHATE
     Indication: ATRIAL FIBRILLATION
     Dosage: 100 MG, 4X/DAY
     Dates: start: 2005
  3. DISOPYRAMIDE PHOSPHATE. [Suspect]
     Active Substance: DISOPYRAMIDE PHOSPHATE
     Indication: VENTRICULAR TACHYCARDIA

REACTIONS (2)
  - Drug hypersensitivity [Unknown]
  - Electrocardiogram QT prolonged [Unknown]
